FAERS Safety Report 5043788-1 (Version None)
Quarter: 2006Q2

REPORT INFORMATION
  Report Type: 
  Country: None (occurrence: None)
  Receive Date: 20060601
  Receipt Date: 20060131
  Transmission Date: 20061013
  Serious: No
  Sender: FDA-Public Use
  Company Number: 2006PV007887

PATIENT
  Age: 36 Year
  Sex: Female

DRUGS (4)
  1. BYETTA [Suspect]
     Indication: DIABETES MELLITUS NON-INSULIN-DEPENDENT
     Dosage: 5 MCG;BID;SC
     Route: 058
     Dates: start: 20060116
  2. METFORMIN [Concomitant]
  3. ACTOPLUS [Concomitant]
  4. MULTIVITAMIN [Concomitant]

REACTIONS (10)
  - ASTHENIA [None]
  - BACK PAIN [None]
  - CHILLS [None]
  - CYSTITIS [None]
  - DYSURIA [None]
  - ENERGY INCREASED [None]
  - HAEMORRHAGE [None]
  - POLLAKIURIA [None]
  - PYREXIA [None]
  - WEIGHT DECREASED [None]
